FAERS Safety Report 17746713 (Version 1)
Quarter: 2020Q2

REPORT INFORMATION
  Report Type: Spontaneous
  Country: CD (occurrence: CD)
  Receive Date: 20200505
  Receipt Date: 20200505
  Transmission Date: 20200714
  Serious: Yes (Other)
  Sender: FDA-Public Use
  Company Number: NVSC2020CD119326

PATIENT

DRUGS (1)
  1. COARTEM [Suspect]
     Active Substance: ARTEMETHER\LUMEFANTRINE
     Indication: MALARIA
     Route: 065

REACTIONS (5)
  - Treatment failure [Unknown]
  - Product colour issue [Unknown]
  - Product counterfeit [Unknown]
  - Immune system disorder [Unknown]
  - Cerebral malaria [Unknown]
